FAERS Safety Report 17625684 (Version 2)
Quarter: 2020Q2

REPORT INFORMATION
  Report Type: Report from Study
  Country: None (occurrence: US)
  Receive Date: 20200404
  Receipt Date: 20200605
  Transmission Date: 20200713
  Serious: Yes (Other)
  Sender: FDA-Public Use
  Company Number: US-INSMED, INC.-US-INS-20-00517

PATIENT
  Sex: Female

DRUGS (2)
  1. ARIKAYCE [Suspect]
     Active Substance: AMIKACIN
     Indication: MYCOBACTERIAL INFECTION
     Route: 055
     Dates: start: 202002, end: 20200313
  2. LAMIRA NEBULIZER SYSTEM [Suspect]
     Active Substance: DEVICE

REACTIONS (7)
  - Feeling abnormal [Unknown]
  - Aphonia [Unknown]
  - Oropharyngeal pain [Unknown]
  - Cough [Unknown]
  - Blindness [Not Recovered/Not Resolved]
  - Dry eye [Unknown]
  - Pruritus [Unknown]

NARRATIVE: CASE EVENT DATE: 2020
